FAERS Safety Report 6842664-9 (Version None)
Quarter: 2010Q3

REPORT INFORMATION
  Report Type: 
  Country: None (occurrence: None)
  Receive Date: 20100714
  Receipt Date: 20070802
  Transmission Date: 20110219
  Serious: No
  Sender: FDA-Public Use
  Company Number: US-PFIZER INC-2007065028

PATIENT
  Sex: Female

DRUGS (4)
  1. CHANTIX [Suspect]
     Dates: start: 20060101
  2. LITHIUM [Concomitant]
  3. ADVAIR DISKUS 100/50 [Concomitant]
  4. ALBUTEROL [Concomitant]

REACTIONS (1)
  - NAUSEA [None]
